FAERS Safety Report 18572979 (Version 2)
Quarter: 2020Q4

REPORT INFORMATION
  Report Type: Spontaneous
  Country: US (occurrence: US)
  Receive Date: 20201203
  Receipt Date: 20201222
  Transmission Date: 20210114
  Serious: Yes (Hospitalization, Other)
  Sender: FDA-Public Use
  Company Number: US-AUROBINDO-AUR-APL-2020-058093

PATIENT
  Age: 17 Year
  Sex: Female

DRUGS (5)
  1. CLONIDINE. [Concomitant]
     Active Substance: CLONIDINE
     Indication: AGGRESSION
     Dosage: 0.1 MILLIGRAM, ONCE A DAY
     Route: 065
  2. SERTRALINE [Concomitant]
     Active Substance: SERTRALINE HYDROCHLORIDE
     Indication: DEPRESSIVE SYMPTOM
     Dosage: 100 MILLIGRAM, ONCE A DAY
     Route: 065
  3. LURASIDONE [Concomitant]
     Active Substance: LURASIDONE
     Indication: PSYCHOTIC SYMPTOM
     Dosage: 60 MILLIGRAM, ONCE A DAY
     Route: 065
  4. NAPROXEN. [Concomitant]
     Active Substance: NAPROXEN
     Indication: PAIN
     Dosage: UNK, AS NECESSARY
     Route: 065
  5. RISPERIDONE. [Suspect]
     Active Substance: RISPERIDONE
     Indication: PSYCHOTIC SYMPTOM
     Dosage: 1 MILLIGRAM, TWO TIMES A DAY
     Route: 065

REACTIONS (3)
  - Akathisia [Unknown]
  - Retching [Unknown]
  - Musculoskeletal stiffness [Unknown]
